FAERS Safety Report 21908713 (Version 1)
Quarter: 2023Q1

REPORT INFORMATION
  Report Type: Spontaneous
  Country: GR (occurrence: GR)
  Receive Date: 20230125
  Receipt Date: 20230125
  Transmission Date: 20230417
  Serious: Yes (Hospitalization, Other)
  Sender: FDA-Public Use
  Company Number: GR-PFIZER INC-202300035912

PATIENT
  Age: 90 Year
  Sex: Female

DRUGS (2)
  1. MEDROL [Suspect]
     Active Substance: METHYLPREDNISOLONE
     Indication: Swelling face
     Dosage: HALF IN THE MORNING AND HALF AT NIGHT FOR 2 DAYS
  2. MEDROL [Suspect]
     Active Substance: METHYLPREDNISOLONE
     Indication: Erythema

REACTIONS (3)
  - Haematochezia [Unknown]
  - Vasculitis [Unknown]
  - Drug ineffective [Unknown]
